FAERS Safety Report 9025308 (Version 1)
Quarter: 2013Q1

REPORT INFORMATION
  Report Type: Spontaneous
  Country: US (occurrence: US)
  Receive Date: 20130122
  Receipt Date: 20130122
  Transmission Date: 20140127
  Serious: Yes (Death, Hospitalization, Other)
  Sender: FDA-Public Use
  Company Number: US-AMGEN-USASP2013002913

PATIENT
  Age: 61 Year
  Sex: Male

DRUGS (2)
  1. ENBREL [Suspect]
     Indication: RHEUMATOID ARTHRITIS
     Dosage: UNK
     Dates: start: 20050215
  2. METHOTREXATE [Concomitant]
     Dosage: UNK

REACTIONS (6)
  - Oesophageal carcinoma [Fatal]
  - Pulmonary oedema [Recovered/Resolved]
  - Fluid overload [Recovered/Resolved]
  - Lung abscess [Recovered/Resolved]
  - Blister [Recovered/Resolved]
  - Gastrooesophageal reflux disease [Recovered/Resolved]
